FAERS Safety Report 6112367-7 (Version None)
Quarter: 2009Q1

REPORT INFORMATION
  Report Type: 
  Country: None (occurrence: None)
  Receive Date: 20090311
  Receipt Date: 20090311
  Transmission Date: 20090719
  Serious: Yes (Other)
  Sender: FDA-Public Use
  Company Number: None

PATIENT
  Sex: Male
  Weight: 88.905 kg

DRUGS (3)
  1. CYMBALTA [Suspect]
     Indication: ANXIETY
     Dosage: 60 MG. 1 CAP. IN MORNING ORAL
     Route: 048
     Dates: start: 20081205, end: 20090115
  2. CYMBALTA [Suspect]
     Indication: DEPRESSION
     Dosage: 60 MG. 1 CAP. IN MORNING ORAL
     Route: 048
     Dates: start: 20081205, end: 20090115
  3. CYMBALTA [Suspect]
     Indication: FIBROMYALGIA
     Dosage: 60 MG. 1 CAP. IN MORNING ORAL
     Route: 048
     Dates: start: 20081205, end: 20090115

REACTIONS (7)
  - MICTURITION URGENCY [None]
  - MUSCLE SPASMS [None]
  - MYALGIA [None]
  - PAIN IN EXTREMITY [None]
  - TENDON PAIN [None]
  - URINARY INCONTINENCE [None]
  - URINE FLOW DECREASED [None]
